FAERS Safety Report 17008974 (Version 1)
Quarter: 2019Q4

REPORT INFORMATION
  Report Type: Spontaneous
  Country: US (occurrence: US)
  Receive Date: 20191108
  Receipt Date: 20191108
  Transmission Date: 20200122
  Serious: No
  Sender: FDA-Public Use
  Company Number: US-TEVA-2019-US-1134535

PATIENT
  Age: 82 Year
  Sex: Female

DRUGS (1)
  1. LIDOCAINE ACTAVIS 5% [Suspect]
     Active Substance: LIDOCAINE
     Route: 065

REACTIONS (3)
  - Application site erythema [Unknown]
  - Product packaging issue [Unknown]
  - Product adhesion issue [Unknown]

NARRATIVE: CASE EVENT DATE: 201905
